FAERS Safety Report 13615351 (Version 1)
Quarter: 2017Q2

REPORT INFORMATION
  Report Type: Spontaneous
  Country: US (occurrence: US)
  Receive Date: 20170605
  Receipt Date: 20170605
  Transmission Date: 20170830
  Serious: Yes (Hospitalization)
  Sender: FDA-Public Use
  Company Number: None

PATIENT
  Age: 49 Year
  Sex: Female
  Weight: 59.1 kg

DRUGS (2)
  1. CIPROFLOXACIN. [Suspect]
     Active Substance: CIPROFLOXACIN
     Indication: URINARY TRACT INFECTION
     Route: 048
     Dates: start: 20130501, end: 20130502
  2. CIPROFLOXACIN. [Suspect]
     Active Substance: CIPROFLOXACIN
     Indication: CYSTITIS
     Route: 048
     Dates: start: 20130501, end: 20130502

REACTIONS (7)
  - Nausea [None]
  - Pharyngeal oedema [None]
  - Swollen tongue [None]
  - Tachycardia [None]
  - Vomiting [None]
  - Swelling face [None]
  - Anaphylactic reaction [None]

NARRATIVE: CASE EVENT DATE: 20130501
